FAERS Safety Report 19056367 (Version 1)
Quarter: 2021Q1

REPORT INFORMATION
  Report Type: Spontaneous
  Country: US (occurrence: US)
  Receive Date: 20210324
  Receipt Date: 20210324
  Transmission Date: 20210420
  Serious: No
  Sender: FDA-Public Use
  Company Number: None

PATIENT
  Age: 26 Year
  Sex: Female
  Weight: 74.84 kg

DRUGS (3)
  1. MIRENA [Suspect]
     Active Substance: LEVONORGESTREL
     Dates: start: 20210303
  2. XYZAL [Concomitant]
     Active Substance: LEVOCETIRIZINE DIHYDROCHLORIDE
  3. VITAMIN B [Concomitant]
     Active Substance: VITAMIN B

REACTIONS (7)
  - Menorrhagia [None]
  - Asthenia [None]
  - Fatigue [None]
  - Peripheral swelling [None]
  - Muscle spasms [None]
  - Abdominal distension [None]
  - Mood swings [None]

NARRATIVE: CASE EVENT DATE: 20210303
